FAERS Safety Report 10057501 (Version 4)
Quarter: 2014Q2

REPORT INFORMATION
  Report Type: Spontaneous
  Country: US (occurrence: US)
  Receive Date: 20140403
  Receipt Date: 20140509
  Transmission Date: 20141212
  Serious: No
  Sender: FDA-Public Use
  Company Number: US-009507513-1403USA011207

PATIENT
  Age: 18 Year
  Sex: Female
  Weight: 52.61 kg

DRUGS (1)
  1. NEXPLANON [Suspect]
     Indication: CONTRACEPTION
     Dosage: UNK
     Route: 059
     Dates: start: 20140224, end: 20140321

REACTIONS (4)
  - Device expulsion [Recovered/Resolved]
  - Device kink [Recovered/Resolved]
  - Device difficult to use [Recovered/Resolved]
  - Implant site pain [Recovered/Resolved]
